FAERS Safety Report 16662286 (Version 1)
Quarter: 2019Q3

REPORT INFORMATION
  Report Type: Spontaneous
  Country: US (occurrence: US)
  Receive Date: 20190619
  Receipt Date: 20190619
  Transmission Date: 20191004
  Serious: Yes (Hospitalization)
  Sender: FDA-Public Use
  Company Number: None

PATIENT
  Sex: Male

DRUGS (5)
  1. ATENOLOL TAB [Concomitant]
     Active Substance: ATENOLOL
  2. ESBRIET [Suspect]
     Active Substance: PIRFENIDONE
     Indication: IDIOPATHIC PULMONARY FIBROSIS
     Route: 048
     Dates: start: 20170422
  3. ALLOPURINOL TAB [Concomitant]
     Active Substance: ALLOPURINOL
  4. ATORVASTATIN TAB [Concomitant]
     Active Substance: ATORVASTATIN
  5. LORAZEPAM TAB [Concomitant]

REACTIONS (2)
  - Dementia [None]
  - Pulmonary embolism [None]
